FAERS Safety Report 8465118-5 (Version None)
Quarter: 2012Q2

REPORT INFORMATION
  Report Type: 
  Country: None (occurrence: None)
  Receive Date: 20120626
  Receipt Date: 20120622
  Transmission Date: 20120825
  Serious: Yes (Death, Hospitalization)
  Sender: FDA-Public Use
  Company Number: BR-B.I. PHARMACEUTICALS,INC./RIDGEFIELD-2012-BR-00667BR

PATIENT
  Sex: Female

DRUGS (8)
  1. LEVODOPA [Concomitant]
     Indication: PARKINSONISM
  2. SIFROL ER [Suspect]
     Indication: RESTLESS LEGS SYNDROME
     Route: 048
     Dates: start: 20120101
  3. DIOVAN [Concomitant]
  4. SERTRALINA [Concomitant]
     Indication: DEPRESSION
  5. ASPIRIN [Concomitant]
     Indication: ANTICOAGULANT THERAPY
  6. LIPITOR [Concomitant]
  7. ALPRAZOLAM [Concomitant]
  8. TAMARINE [Concomitant]
     Indication: CONSTIPATION

REACTIONS (4)
  - INFECTION [None]
  - PNEUMONIA [None]
  - CEREBROVASCULAR ACCIDENT [None]
  - URINARY TRACT INFECTION [None]
